FAERS Safety Report 7780151-4 (Version None)
Quarter: 2011Q3

REPORT INFORMATION
  Report Type: 
  Country: None (occurrence: None)
  Receive Date: 20110927
  Receipt Date: 20110511
  Transmission Date: 20111222
  Serious: No
  Sender: FDA-Public Use
  Company Number: US-ASTRAZENECA-2011SE28005

PATIENT
  Age: 50 Year
  Sex: Female

DRUGS (8)
  1. SEROQUEL [Suspect]
     Route: 048
  2. SEROQUEL [Suspect]
     Indication: BIPOLAR I DISORDER
     Route: 048
  3. LAMICTAL [Concomitant]
  4. SEROQUEL [Suspect]
     Route: 048
  5. BUPROPION [Concomitant]
  6. SEROQUEL [Suspect]
     Route: 048
  7. EXCEDRIN (MIGRAINE) [Concomitant]
     Indication: MIGRAINE
  8. KLONOPIN [Concomitant]

REACTIONS (9)
  - INCORRECT DOSE ADMINISTERED [None]
  - DEPRESSED MOOD [None]
  - ANXIETY [None]
  - DRUG DOSE OMISSION [None]
  - MIGRAINE [None]
  - ANGER [None]
  - MALAISE [None]
  - INSOMNIA [None]
  - DRUG INEFFECTIVE [None]
